FAERS Safety Report 23844976 (Version 1)
Quarter: 2024Q2

REPORT INFORMATION
  Report Type: Spontaneous
  Country: FR (occurrence: FR)
  Receive Date: 20240511
  Receipt Date: 20240511
  Transmission Date: 20240716
  Serious: Yes (Other)
  Sender: FDA-Public Use
  Company Number: None

PATIENT
  Age: 19 Year
  Sex: Female

DRUGS (3)
  1. ETOPOSIDE [Suspect]
     Active Substance: ETOPOSIDE
     Indication: Ovarian cancer
     Route: 042
     Dates: start: 20080401, end: 200805
  2. BLEOMYCIN [Suspect]
     Active Substance: BLEOMYCIN SULFATE
     Indication: Ovarian cancer
     Route: 042
     Dates: start: 20080401, end: 200805
  3. CISPLATIN [Suspect]
     Active Substance: CISPLATIN
     Indication: Ovarian cancer
     Route: 042
     Dates: start: 20080401, end: 200805

REACTIONS (1)
  - Pleuroparenchymal fibroelastosis [Not Recovered/Not Resolved]

NARRATIVE: CASE EVENT DATE: 20080601
